FAERS Safety Report 5364972-3 (Version None)
Quarter: 2007Q2

REPORT INFORMATION
  Report Type: 
  Country: None (occurrence: None)
  Receive Date: 20070621
  Receipt Date: 20070612
  Transmission Date: 20071010
  Serious: Yes (Other)
  Sender: FDA-Public Use
  Company Number: US-JNJFOC-20070603090

PATIENT
  Sex: Female
  Weight: 53.52 kg

DRUGS (4)
  1. DURAGESIC-100 [Suspect]
     Indication: PAIN
     Dosage: 2 X 100 MCG
     Route: 062
  2. DIGOXIN [Concomitant]
     Indication: CARDIAC DISORDER
     Route: 048
  3. PHENERGAN HCL [Concomitant]
     Indication: NAUSEA
     Dosage: AS NEEDED
     Route: 054
  4. FIORICET [Concomitant]
     Indication: BREAKTHROUGH PAIN
     Dosage: 1 AS NEEDED
     Route: 048

REACTIONS (6)
  - BREAKTHROUGH PAIN [None]
  - GASTROOESOPHAGEAL REFLUX DISEASE [None]
  - IRRITABLE BOWEL SYNDROME [None]
  - NAUSEA [None]
  - PAIN [None]
  - WRONG TECHNIQUE IN DRUG USAGE PROCESS [None]
